FAERS Safety Report 4818627-1 (Version None)
Quarter: 2005Q4

REPORT INFORMATION
  Report Type: 
  Country: None (occurrence: None)
  Receive Date: 20051101
  Receipt Date: 20051019
  Transmission Date: 20060501
  Serious: Yes (Death, Other)
  Sender: FDA-Public Use
  Company Number: 2005131128

PATIENT
  Age: 66 Year
  Sex: Male

DRUGS (5)
  1. SERTRALINE HCL [Suspect]
     Dosage: ORAL
     Route: 048
  2. IBUPROFEN [Suspect]
     Dosage: ORAL
     Route: 048
  3. NAPROXEN [Suspect]
     Dosage: ORAL
     Route: 048
  4. PARACETAMOL/CODEINE (PARACETAMOL, CODEINE) [Suspect]
     Dosage: ORAL
     Route: 048
  5. ROFECOXIB [Suspect]
     Dosage: ORAL
     Route: 048

REACTIONS (7)
  - BLOOD PRESSURE SYSTOLIC INCREASED [None]
  - COMPLETED SUICIDE [None]
  - DEPRESSED LEVEL OF CONSCIOUSNESS [None]
  - HEART RATE INCREASED [None]
  - HYPERHIDROSIS [None]
  - MULTIPLE DRUG OVERDOSE [None]
  - RESPIRATORY ARREST [None]
